FAERS Safety Report 7585222-3 (Version None)
Quarter: 2011Q3

REPORT INFORMATION
  Report Type: 
  Country: None (occurrence: None)
  Receive Date: 20110701
  Receipt Date: 20110622
  Transmission Date: 20111222
  Serious: No
  Sender: FDA-Public Use
  Company Number: US-BIOGENIDEC-2011BI023036

PATIENT
  Sex: Female

DRUGS (3)
  1. TYSABRI [Suspect]
     Route: 042
     Dates: start: 20050221
  2. TYSABRI [Suspect]
     Indication: MULTIPLE SCLEROSIS
     Route: 042
     Dates: start: 20080304
  3. TYSABRI [Suspect]
     Route: 042
     Dates: start: 20070720, end: 20071120

REACTIONS (5)
  - DRUG INEFFECTIVE [None]
  - ANXIETY [None]
  - H1N1 INFLUENZA [None]
  - STRESS [None]
  - MULTIPLE SCLEROSIS RELAPSE [None]
